FAERS Safety Report 4972362-8 (Version None)
Quarter: 2006Q2

REPORT INFORMATION
  Report Type: 
  Country: None (occurrence: None)
  Receive Date: 20060413
  Receipt Date: 20060313
  Transmission Date: 20061013
  Serious: Yes (Disabling, Other)
  Sender: FDA-Public Use
  Company Number: US-MERCK-0603USA02217

PATIENT
  Age: 41 Year
  Sex: Male
  Weight: 108 kg

DRUGS (3)
  1. VIOXX [Suspect]
     Indication: ARTHRITIS
     Route: 048
  2. ADVAIR DISKUS 100/50 [Concomitant]
     Route: 065
  3. SINGULAIR [Concomitant]
     Route: 065

REACTIONS (4)
  - CARDIAC DISORDER [None]
  - CHRONIC OBSTRUCTIVE PULMONARY DISEASE [None]
  - HEPATITIS C [None]
  - MYOCARDIAL INFARCTION [None]
